FAERS Safety Report 6916482-7 (Version None)
Quarter: 2010Q3

REPORT INFORMATION
  Report Type: 
  Country: None (occurrence: None)
  Receive Date: 20100810
  Receipt Date: 20100804
  Transmission Date: 20110219
  Serious: Yes (Life-Threatening, Other)
  Sender: FDA-Public Use
  Company Number: PHHY2010JP51551

PATIENT

DRUGS (10)
  1. DIOVAN [Suspect]
     Dosage: 40 MG, QD
     Route: 048
     Dates: start: 20080616, end: 20100613
  2. DIOVAN [Suspect]
     Dosage: 80 MG, QD
     Route: 048
     Dates: start: 20100614, end: 20100614
  3. PL [Concomitant]
     Dosage: 2 G
     Route: 048
     Dates: start: 20081020
  4. PL [Concomitant]
     Dosage: 2 G
     Route: 048
  5. PL [Concomitant]
     Dosage: 2 G
     Route: 048
  6. PL [Concomitant]
     Dosage: 2 G
     Route: 048
     Dates: end: 20090525
  7. ALOSENN [Concomitant]
     Dosage: 0.5 G
     Route: 048
     Dates: start: 20090420
  8. ALOSENN [Concomitant]
     Dosage: 0.5 G
     Route: 048
     Dates: end: 20090525
  9. AMARYL [Concomitant]
     Dosage: 1 MG
     Route: 048
     Dates: start: 20090420
  10. MILTAX [Concomitant]
     Dosage: 30 MG
     Route: 062
     Dates: start: 20090907

REACTIONS (8)
  - BACK PAIN [None]
  - BLOOD GLUCOSE INCREASED [None]
  - BLOOD PRESSURE SYSTOLIC INCREASED [None]
  - CONSTIPATION [None]
  - COUGH [None]
  - PULMONARY CONGESTION [None]
  - RENAL IMPAIRMENT [None]
  - RHINORRHOEA [None]
